FAERS Safety Report 12304661 (Version 1)
Quarter: 2016Q2

REPORT INFORMATION
  Report Type: Spontaneous
  Country: FR (occurrence: FR)
  Receive Date: 20160426
  Receipt Date: 20160426
  Transmission Date: 20160815
  Serious: Yes (Hospitalization)
  Sender: FDA-Public Use
  Company Number: FR-ACCORD-039928

PATIENT
  Age: 61 Year
  Sex: Male

DRUGS (4)
  1. ZOPHREN [Concomitant]
     Active Substance: ONDANSETRON
  2. LARGACTIL [Concomitant]
     Active Substance: CHLORPROMAZINE
  3. FENTANYL. [Concomitant]
     Active Substance: FENTANYL
  4. CISPLATIN ACCORD [Suspect]
     Active Substance: CISPLATIN
     Indication: TONSIL CANCER
     Dosage: 100 MG/M^2?RECEIVED 02-FEB-2016 (DAY 1) AND ON 23-FEB-2016 (DAY 22)
     Route: 042
     Dates: start: 20160202, end: 20160223

REACTIONS (2)
  - Renal tubular necrosis [Recovering/Resolving]
  - Acute kidney injury [Recovering/Resolving]

NARRATIVE: CASE EVENT DATE: 20160229
